FAERS Safety Report 7041460-X (Version None)
Quarter: 2010Q4

REPORT INFORMATION
  Report Type: 
  Country: None (occurrence: None)
  Receive Date: 20101013
  Receipt Date: 20100928
  Transmission Date: 20110411
  Serious: Yes (Hospitalization)
  Sender: FDA-Public Use
  Company Number: GB-ROCHE-731595

PATIENT
  Sex: Female
  Weight: 67.4 kg

DRUGS (3)
  1. CAPECITABINE [Suspect]
     Indication: BREAST CANCER
     Dosage: LAST DOSE PRIOR TO SAE: 24 AUGUST 2010
     Route: 048
     Dates: start: 20100817, end: 20100906
  2. DOCETAXEL [Suspect]
     Indication: BREAST CANCER
     Dosage: FREQUENCY: 3/52.  LAST DOSE PRIOR TO SAE: 06 SEPTEMBER 2010
     Route: 042
     Dates: start: 20100816, end: 20100906
  3. LENOGRASTIM [Concomitant]
     Dosage: DRUG NAME REPORTED AS: LENOGRASTIN, TDD REPORTED AS: 263
     Dates: start: 20100817, end: 20100823

REACTIONS (1)
  - PANIC ATTACK [None]
